FAERS Safety Report 6666396-5 (Version None)
Quarter: 2010Q2

REPORT INFORMATION
  Report Type: 
  Country: None (occurrence: None)
  Receive Date: 20100402
  Receipt Date: 20100324
  Transmission Date: 20101027
  Serious: Yes (Other)
  Sender: FDA-Public Use
  Company Number: GB-B.I. PHARMACEUTICALS,INC./RIDGEFIELD-2010-DE-01870GD

PATIENT
  Sex: Male

DRUGS (2)
  1. PRAMIPEXOLE DIHYDROCHLORIDE [Suspect]
     Indication: PARKINSON'S DISEASE
     Dosage: 3 MG
     Dates: start: 20060101
  2. LEVODOPA [Suspect]
     Indication: PARKINSON'S DISEASE
     Dosage: 600 MG

REACTIONS (4)
  - ABNORMAL BEHAVIOUR [None]
  - HYPERSEXUALITY [None]
  - IMPULSE-CONTROL DISORDER [None]
  - STEREOTYPY [None]
